FAERS Safety Report 8339236-6 (Version None)
Quarter: 2012Q2

REPORT INFORMATION
  Report Type: 
  Country: None (occurrence: None)
  Receive Date: 20120507
  Receipt Date: 20120426
  Transmission Date: 20120825
  Serious: Yes (Hospitalization, Other)
  Sender: FDA-Public Use
  Company Number: US-SANOFI-AVENTIS-2012SA023079

PATIENT
  Age: 41 Year
  Sex: Female

DRUGS (4)
  1. LANTUS [Suspect]
     Dosage: 25 UNITS IN AM AND 18 UNITS IN PM
     Route: 058
     Dates: start: 20120101
  2. LANTUS [Suspect]
     Dosage: 25 UNITS IN AM AND 5 UNITS IN PM
     Route: 058
     Dates: start: 20120101
  3. SOLOSTAR [Suspect]
     Dates: start: 20120101
  4. NOVOLOG [Suspect]
     Route: 065
     Dates: start: 20120101

REACTIONS (2)
  - IMPAIRED HEALING [None]
  - HYPOGLYCAEMIA [None]
